FAERS Safety Report 9461569 (Version 2)
Quarter: 2014Q1

REPORT INFORMATION
  Report Type: Spontaneous
  Country: US (occurrence: US)
  Receive Date: 20130816
  Receipt Date: 20140113
  Transmission Date: 20141002
  Serious: Yes (Hospitalization, Other)
  Sender: FDA-Public Use
  Company Number: US-PFIZER INC-2013237118

PATIENT
  Age: 59 Year
  Sex: Female
  Weight: 63.49 kg

DRUGS (5)
  1. LYRICA [Suspect]
     Indication: FIBROMYALGIA
     Dosage: 150 MG, 3X/DAY
     Route: 048
     Dates: start: 2009, end: 2013
  2. LYRICA [Suspect]
     Dosage: 150 MG, 3X/DAY
     Route: 048
  3. TOPROL [Concomitant]
     Indication: CARDIAC DISORDER
     Dosage: 25 MG, 2X/DAY
  4. POTASSIUM [Concomitant]
     Dosage: 2.5
  5. CLONIDINE [Concomitant]
     Indication: HYPERTENSION
     Dosage: 0.2 MG, AS NEEDED

REACTIONS (11)
  - Cardiac failure [Recovered/Resolved]
  - Haematemesis [Unknown]
  - Haemoptysis [Unknown]
  - Lung infection [Unknown]
  - Respiratory tract infection [Unknown]
  - Ulcer [Unknown]
  - Malaise [Not Recovered/Not Resolved]
  - Chest pain [Unknown]
  - Aortic aneurysm [Unknown]
  - Nasopharyngitis [Not Recovered/Not Resolved]
  - Speech disorder [Unknown]
